FAERS Safety Report 5714714-4 (Version None)
Quarter: 2008Q2

REPORT INFORMATION
  Report Type: 
  Country: None (occurrence: None)
  Receive Date: 20080422
  Receipt Date: 20080411
  Transmission Date: 20081010
  Serious: No
  Sender: FDA-Public Use
  Company Number: APP200800277

PATIENT
  Age: 40 Year
  Sex: Female
  Weight: 54.4316 kg

DRUGS (3)
  1. HEPARIN SODIUM INJECTION [Suspect]
     Indication: HYPERCOAGULATION
     Dosage: 4000 USP UNITS, 2 IN 1 D, SUBCUTANEOUS
     Route: 058
     Dates: start: 20080326, end: 20080409
  2. ZITHROMAX [Concomitant]
  3. METRON [Concomitant]

REACTIONS (4)
  - CHEST DISCOMFORT [None]
  - HEADACHE [None]
  - HEART RATE INCREASED [None]
  - PRESYNCOPE [None]
